FAERS Safety Report 13833502 (Version 3)
Quarter: 2017Q3

REPORT INFORMATION
  Report Type: Report from Study
  Country: US (occurrence: US)
  Receive Date: 20170804
  Receipt Date: 20170914
  Transmission Date: 20171127
  Serious: Yes (Other)
  Sender: FDA-Public Use
  Company Number: US-AMGEN-USASL2017106342

PATIENT
  Age: 69 Year
  Sex: Female

DRUGS (2)
  1. PREDNISONE. [Concomitant]
     Active Substance: PREDNISONE
     Dosage: 5 MG, QD
  2. NPLATE [Suspect]
     Active Substance: ROMIPLOSTIM
     Indication: IMMUNE THROMBOCYTOPENIC PURPURA
     Dosage: QWK
     Route: 065
     Dates: start: 2015

REACTIONS (12)
  - Bone disorder [Unknown]
  - Fatigue [Unknown]
  - Osteonecrosis [Unknown]
  - Gait inability [Unknown]
  - Unevaluable event [Unknown]
  - Ill-defined disorder [Unknown]
  - Fall [Unknown]
  - Cataract [Unknown]
  - Benign pancreatic neoplasm [Unknown]
  - Back disorder [Unknown]
  - Contusion [Unknown]
  - Platelet count abnormal [Unknown]

NARRATIVE: CASE EVENT DATE: 2015
